FAERS Safety Report 8246593-8 (Version None)
Quarter: 2012Q1

REPORT INFORMATION
  Report Type: 
  Country: None (occurrence: None)
  Receive Date: 20120330
  Receipt Date: 20120326
  Transmission Date: 20120608
  Serious: Yes (Hospitalization, Other)
  Sender: FDA-Public Use
  Company Number: US-PFIZER INC-2012078132

PATIENT
  Sex: Male
  Weight: 90.703 kg

DRUGS (2)
  1. TOVIAZ [Suspect]
     Indication: URINARY RETENTION
  2. TOVIAZ [Suspect]
     Indication: HYPOTONIC URINARY BLADDER
     Dosage: 4 MG, DAILY
     Dates: start: 20100101

REACTIONS (5)
  - DYSPHAGIA [None]
  - VOMITING [None]
  - DRUG INEFFECTIVE [None]
  - OESOPHAGEAL ACHALASIA [None]
  - PARKINSON'S DISEASE [None]
